FAERS Safety Report 16648955 (Version 2)
Quarter: 2020Q3

REPORT INFORMATION
  Report Type: Spontaneous
  Country: US (occurrence: US)
  Receive Date: 20190730
  Receipt Date: 20190808
  Transmission Date: 20201104
  Serious: Yes (Hospitalization)
  Sender: FDA-Public Use
  Company Number: US-TEVA-2019-US-1084128

PATIENT
  Age: 74 Year
  Sex: Female

DRUGS (16)
  1. KRILL OIL [Suspect]
     Active Substance: DIETARY SUPPLEMENT\KRILL OIL
     Route: 065
  2. LOSARTAN. [Concomitant]
     Active Substance: LOSARTAN
     Route: 065
  3. IBUPROFEN. [Suspect]
     Active Substance: IBUPROFEN
     Indication: RADICULAR PAIN
     Route: 065
  4. CARBIDOPA/LEVODOPA [Concomitant]
     Active Substance: CARBIDOPA\LEVODOPA
     Indication: PARKINSON^S DISEASE
     Dosage: 25?100MG THREE TIMES DAILY
     Route: 065
  5. LIDOCAINE. [Concomitant]
     Active Substance: LIDOCAINE
     Dosage: SUBCUTANEOUSLY INJECTED IN THE C7?T1 INTER?SPACE
     Route: 058
  6. DEXAMETHASONE. [Concomitant]
     Active Substance: DEXAMETHASONE
     Route: 008
  7. CETIRIZINE [Concomitant]
     Active Substance: CETIRIZINE HYDROCHLORIDE
     Route: 065
  8. KETOROLAC [Suspect]
     Active Substance: KETOROLAC TROMETHAMINE
     Indication: MUSCULOSKELETAL PAIN
     Route: 030
  9. PREGABALIN. [Concomitant]
     Active Substance: PREGABALIN
     Route: 065
  10. NORMAL SALINE [Concomitant]
     Active Substance: SODIUM CHLORIDE
     Route: 008
  11. ATORVASTATIN [Concomitant]
     Active Substance: ATORVASTATIN
     Route: 065
  12. MULTIVITAMIN [Concomitant]
     Active Substance: VITAMINS
     Route: 065
  13. BUPIVACAINE. [Concomitant]
     Active Substance: BUPIVACAINE
     Indication: MUSCULOSKELETAL PAIN
     Route: 065
  14. OMNIPAQUE [Concomitant]
     Active Substance: IOHEXOL
     Indication: SCAN WITH CONTRAST
     Route: 008
  15. CALCIUM CARBONATE/VITAMIN D2 [Concomitant]
     Dosage: CALCIUM?CARBONATE (1250MG) AND ERGOCALCIFEROL (200U) DAILY
     Route: 065
  16. SELEGILINE [Concomitant]
     Active Substance: SELEGILINE
     Route: 065

REACTIONS (3)
  - Spinal epidural haematoma [Recovered/Resolved]
  - Urinary retention [Recovered/Resolved]
  - Joint range of motion decreased [Recovered/Resolved]
